FAERS Safety Report 5594314-X (Version None)
Quarter: 2008Q1

REPORT INFORMATION
  Report Type: 
  Country: None (occurrence: None)
  Receive Date: 20080117
  Receipt Date: 20080109
  Transmission Date: 20080703
  Serious: Yes (Hospitalization)
  Sender: FDA-Public Use
  Company Number: PHRM2008FR00477

PATIENT
  Sex: Female

DRUGS (10)
  1. SUFENTA [Concomitant]
     Indication: SPINAL ANAESTHESIA
     Dosage: 10 UG, ONCE/SINGLE
     Route: 042
     Dates: start: 20070116, end: 20070116
  2. SUFENTA [Concomitant]
     Dosage: 10 UG, ONCE/SINGLE
     Route: 037
     Dates: start: 20070116, end: 20070116
  3. BUPIVACAINE [Concomitant]
     Indication: SPINAL ANAESTHESIA
     Dosage: 3.75 MG, ONCE/SINGLE
     Route: 037
     Dates: start: 20070116, end: 20070116
  4. DIPRIVAN [Concomitant]
     Indication: GENERAL ANAESTHESIA
     Dosage: 200 MG, ONCE/SINGLE
     Route: 042
     Dates: start: 20070116, end: 20070116
  5. DIPRIVAN [Concomitant]
     Route: 042
     Dates: start: 20070116
  6. OXYGEN [Concomitant]
     Indication: GENERAL ANAESTHESIA
     Dosage: UNK, UNK
     Dates: start: 20070116, end: 20070116
  7. NITROUS OXIDE [Concomitant]
     Indication: GENERAL ANAESTHESIA
     Dates: start: 20070116, end: 20070116
  8. SYNTOCINON [Suspect]
     Dosage: 5 IU, ONCE/SINGLE
     Route: 042
     Dates: start: 20070116, end: 20070116
  9. CELOCURIN [Suspect]
     Dosage: 100 MG, ONCE/SINGLE
     Route: 042
     Dates: start: 20070116, end: 20070116
  10. CELOCURIN [Suspect]
     Dosage: UNK, UNK
     Dates: start: 20070116, end: 20070116

REACTIONS (7)
  - HEART RATE INCREASED [None]
  - HYPERHIDROSIS [None]
  - HYPERTENSION [None]
  - INBORN ERROR OF METABOLISM [None]
  - INCORRECT DRUG ADMINISTRATION RATE [None]
  - LACRIMATION INCREASED [None]
  - NEUROMUSCULAR BLOCK PROLONGED [None]
